FAERS Safety Report 4482372-5 (Version None)
Quarter: 2004Q4

REPORT INFORMATION
  Report Type: 
  Country: None (occurrence: None)
  Receive Date: 20041022
  Receipt Date: 20030912
  Transmission Date: 20050328
  Serious: No
  Sender: FDA-Public Use
  Company Number: US-BRISTOL-MYERS SQUIBB COMPANY-12382123

PATIENT
  Age: 52 Year
  Sex: Female
  Weight: 54 kg

DRUGS (2)
  1. BUSPAR [Suspect]
     Indication: ANXIETY
     Dosage: PT TAKES 1/3 OF A 15 MG TABLET 2-3 TIMES DAILY-DID NOT TAKE CONSISTENTLY
     Route: 048
  2. BUSPAR [Suspect]
     Indication: HYPERTENSION
     Dosage: PT TAKES 1/3 OF A 15 MG TABLET 2-3 TIMES DAILY-DID NOT TAKE CONSISTENTLY
     Route: 048

REACTIONS (6)
  - DIZZINESS [None]
  - ERUCTATION [None]
  - GLOSSODYNIA [None]
  - HEADACHE [None]
  - HYPERSOMNIA [None]
  - VOMITING [None]
